FAERS Safety Report 6506437-9 (Version None)
Quarter: 2009Q4

REPORT INFORMATION
  Report Type: 
  Country: None (occurrence: None)
  Receive Date: 20091221
  Receipt Date: 20091215
  Transmission Date: 20100525
  Serious: Yes (Hospitalization)
  Sender: FDA-Public Use
  Company Number: US-RB-026920-09

PATIENT
  Age: 47 Year
  Sex: Male

DRUGS (2)
  1. SUBOXONE [Suspect]
     Route: 060
     Dates: start: 20091001, end: 20091204
  2. SUBOXONE [Suspect]
     Route: 060
     Dates: start: 20091210

REACTIONS (2)
  - HERNIA [None]
  - MUSCLE STRAIN [None]
